FAERS Safety Report 12383127 (Version 3)
Quarter: 2018Q4

REPORT INFORMATION
  Report Type: Spontaneous
  Country: US (occurrence: US)
  Receive Date: 20160518
  Receipt Date: 20181017
  Transmission Date: 20190204
  Serious: No
  Sender: FDA-Public Use
  Company Number: US-PFIZER INC-2016228352

PATIENT
  Age: 60 Year
  Sex: Female
  Weight: 128 kg

DRUGS (21)
  1. ATORVASTATIN [Concomitant]
     Active Substance: ATORVASTATIN
     Dosage: 10 MG, DAILY
     Route: 048
  2. METHOCARBAMOL. [Concomitant]
     Active Substance: METHOCARBAMOL
     Dosage: 500 MG, 3X/DAY
     Route: 048
     Dates: start: 20151214
  3. TIZANIDINE. [Concomitant]
     Active Substance: TIZANIDINE
     Indication: MUSCLE RELAXANT THERAPY
     Dosage: 4 MG, 3X/DAY
  4. HYDROCHLOROTHIAZIDE. [Concomitant]
     Active Substance: HYDROCHLOROTHIAZIDE
     Dosage: 12.5 MG, DAILY
     Route: 048
     Dates: start: 20150715
  5. LISINOPRIL. [Concomitant]
     Active Substance: LISINOPRIL
     Dosage: 20 MG, DAILY
     Route: 048
  6. RELISTOR [Concomitant]
     Active Substance: METHYLNALTREXONE BROMIDE
     Dosage: 12 MG/0.6 ML, INJECT (0.15 MG/KG), EVERY 2 DAYS
     Route: 058
  7. LYRICA [Suspect]
     Active Substance: PREGABALIN
     Indication: NEUROPATHY PERIPHERAL
     Dosage: 100 MG, 3X/DAY
     Route: 048
     Dates: start: 20160328, end: 20181001
  8. LINZESS [Concomitant]
     Active Substance: LINACLOTIDE
     Dosage: 20 UG, DAILY (ON AN EMPTY STOMACH AT LEAST 30 MINUTES BEFORE 1ST MEAL OF THE DAY)
     Route: 048
     Dates: start: 20150828
  9. VISTARIL [Concomitant]
     Active Substance: HYDROXYZINE PAMOATE
     Dosage: 25 MG, DAILY
     Route: 048
  10. FUROSEMIDE. [Concomitant]
     Active Substance: FUROSEMIDE
     Dosage: 40 MG, DAILY
     Route: 048
  11. OMEPRAZOLE. [Concomitant]
     Active Substance: OMEPRAZOLE
     Dosage: 40 MG, DAILY(BEFORE A MEAL)
     Route: 048
  12. PERCOCET [Concomitant]
     Active Substance: ACETAMINOPHEN\OXYCODONE HYDROCHLORIDE
     Indication: PAIN
     Dosage: OXYCODONE HYDROCHLORIDE-5 MG, PARACETAMOL-325 MG, TAKE 1 TABLET, AS NEEDED
  13. OXYCODONE HYDROCHLORIDE. [Concomitant]
     Active Substance: OXYCODONE HYDROCHLORIDE
     Indication: PAIN
     Dosage: 10 MG, AS NEEDED (THREE TIMES A DAY AS NEEDED)
  14. LYRICA [Suspect]
     Active Substance: PREGABALIN
     Indication: CERVICAL RADICULOPATHY
  15. LYRICA [Suspect]
     Active Substance: PREGABALIN
     Indication: BACK PAIN
  16. LYRICA [Suspect]
     Active Substance: PREGABALIN
     Indication: FIBROMYALGIA
  17. BISAC EVAC [Concomitant]
     Indication: CONSTIPATION
     Dosage: 10 MG, AS NEEDED
     Route: 054
  18. CELEBREX [Concomitant]
     Active Substance: CELECOXIB
     Indication: PAIN
     Dosage: 200 MG, 2X/DAY
     Route: 048
     Dates: start: 20160328
  19. CELEBREX [Concomitant]
     Active Substance: CELECOXIB
     Indication: OSTEOARTHRITIS
     Dosage: 200 MG, 2X/DAY
     Route: 048
  20. CORRECTOL NOS [Concomitant]
     Active Substance: BISACODYL OR DOCUSATE SODIUM
     Dosage: TAKE AS INSTRUCTED
  21. METOCLOPRAMIDE. [Concomitant]
     Active Substance: METOCLOPRAMIDE
     Dosage: 5 MG, 4X/DAY(30 MINUTES BEFORE MEALS AND AT BEDTIME)
     Route: 048
     Dates: start: 20150805

REACTIONS (6)
  - Oedema peripheral [Unknown]
  - Pain in extremity [Unknown]
  - Dysstasia [Unknown]
  - Pain [Unknown]
  - Condition aggravated [Unknown]
  - Impaired work ability [Unknown]
